FAERS Safety Report 7657390 (Version 5)
Quarter: 2013Q1

REPORT INFORMATION
  Report Type: Spontaneous
  Country: US (occurrence: US)
  Receive Date: 20101105
  Receipt Date: 20130213
  Transmission Date: 20140127
  Serious: Yes (Other)
  Sender: FDA-Public Use
  Company Number: US-BAYER-201039440NA

PATIENT
  Age: 39 Year
  Sex: Female
  Weight: 74.83 kg

DRUGS (18)
  1. YAZ [Suspect]
     Indication: CONTRACEPTION
     Dosage: UNK UNK, QD
     Route: 048
     Dates: start: 20071120, end: 20080217
  2. YAZ [Suspect]
     Indication: PREMENSTRUAL SYNDROME
     Dosage: UNK
     Dates: start: 20081019, end: 20091123
  3. YASMIN [Suspect]
     Indication: CONTRACEPTION
     Dosage: UNK UNK, QD
     Route: 048
     Dates: start: 20061128, end: 20070414
  4. YASMIN [Suspect]
     Indication: PREMENSTRUAL SYNDROME
  5. LISINOPRIL [Concomitant]
     Dosage: 20 MG, UNK
     Route: 048
     Dates: start: 20091012
  6. HYDROCHLOROTHIAZIDE [Concomitant]
     Dosage: 12.5 MG, UNK
     Route: 048
  7. CYMBALTA [Concomitant]
     Dosage: 60 MG, UNK
     Route: 048
  8. SPECTRACEF [Concomitant]
     Dosage: 200 MG, UNK
  9. PROPOXYPHENE [Concomitant]
     Dosage: 100-650 MG, UNK
     Route: 048
  10. LORAZEPAM [Concomitant]
     Dosage: 0.5 MG, UNK
     Route: 048
  11. HYDROMET [HYDROCHLOROTHIAZIDE,METHYLDOPA] [Concomitant]
     Dosage: 5-1.5 (OR 0.5-1.5) MG, UNK
     Route: 048
  12. SYMBICORT [Concomitant]
     Dosage: 160 ?G, UNK
     Route: 048
  13. SYMBICORT [Concomitant]
     Dosage: 4.5 ?G, UNK
     Route: 048
  14. ZALEPLON [Concomitant]
     Dosage: 5 MG, UNK
     Route: 048
  15. OMEGA 3 FATTY ACIDS [Concomitant]
     Dosage: 1 MG (GM?), UNK
     Route: 048
  16. VESICARE [SOLIFENACIN] [Concomitant]
     Dosage: 5 MG, UNK
     Route: 048
  17. CELEXA [Concomitant]
     Dosage: NOT SPECIFIED
     Route: 048
  18. ACIPHEX [Concomitant]

REACTIONS (4)
  - Cholecystitis chronic [None]
  - Cholelithiasis [None]
  - Pain [None]
  - Gallbladder disorder [Unknown]
